FAERS Safety Report 9772084 (Version 1)
Quarter: 2013Q4

REPORT INFORMATION
  Report Type: Spontaneous
  Country: US (occurrence: None)
  Receive Date: 20131218
  Receipt Date: 20131218
  Transmission Date: 20140711
  Serious: Yes (Other)
  Sender: FDA-Public Use
  Company Number: None

PATIENT
  Age: 54 Year
  Sex: Male
  Weight: 88.45 kg

DRUGS (5)
  1. RECLAST [Suspect]
     Indication: SENILE OSTEOPOROSIS
     Dates: start: 20131201, end: 20131201
  2. ADVAIR [Concomitant]
  3. ATROVENT [Concomitant]
  4. PRAVASTATIN [Concomitant]
  5. ZEMAIRA [Concomitant]

REACTIONS (7)
  - Body temperature increased [None]
  - Arthralgia [None]
  - Abasia [None]
  - Pain [None]
  - Pain in extremity [None]
  - Impaired work ability [None]
  - Arthralgia [None]
